FAERS Safety Report 16589607 (Version 1)
Quarter: 2019Q3

REPORT INFORMATION
  Report Type: Spontaneous
  Country: RU (occurrence: RU)
  Receive Date: 20190718
  Receipt Date: 20190718
  Transmission Date: 20191004
  Serious: Yes (Other)
  Sender: FDA-Public Use
  Company Number: RU-SA-2019SA190334

PATIENT
  Age: 50 Year
  Sex: Male

DRUGS (5)
  1. THYMOGLOBULIN [Suspect]
     Active Substance: LAPINE T-LYMPHOCYTE IMMUNE GLOBULIN
     Indication: PREMEDICATION
     Dosage: ABOUT 6 HOURS IN/AT -2 AND -1 DAYS / ABOUT 30 MINUTES IN/AT -3 AND -2 DAYS MG / ABOUT 30 MINUTES AT
     Route: 042
  2. ALKERAN [Suspect]
     Active Substance: MELPHALAN
     Indication: PREMEDICATION
     Dosage: ABOUT 30 MINUTES IN/AT -3 AND -2 DAYS / ABOUT 30 MINUTES IN/AT -3 AND -2 DAYS MG / ABOUT 30 MINUTES
     Route: 042
  3. CYCLOSPORIN [Concomitant]
     Active Substance: CYCLOSPORINE
     Indication: PROPHYLAXIS AGAINST GRAFT VERSUS HOST DISEASE
     Route: 042
  4. FLUDARABINE PHOSPHATE. [Suspect]
     Active Substance: FLUDARABINE PHOSPHATE
     Indication: PREMEDICATION
     Dosage: ABOUT 30 MINUTES IN/AT -4, -3 AND -2 DAYS / ABOUT 30 MINUTES IN/AT -3 AND -2 DAYS MG / ABOUT 30 MINU
     Route: 042
  5. MYCOPHENOLATE MOFETIL. [Concomitant]
     Active Substance: MYCOPHENOLATE MOFETIL
     Indication: PROPHYLAXIS AGAINST GRAFT VERSUS HOST DISEASE
     Dosage: UNK

REACTIONS (2)
  - Febrile neutropenia [Unknown]
  - Product use in unapproved indication [Unknown]
